FAERS Safety Report 6552932-6 (Version None)
Quarter: 2010Q1

REPORT INFORMATION
  Report Type: 
  Country: None (occurrence: None)
  Receive Date: 20100122
  Receipt Date: 20100111
  Transmission Date: 20100710
  Serious: Yes (Death)
  Sender: FDA-Public Use
  Company Number: IT-2010-0050

PATIENT
  Sex: Female

DRUGS (6)
  1. NAVELBINE [Suspect]
     Indication: VULVAL CANCER
     Dosage: 25 MG/M2 IV
     Route: 042
  2. CISPLATIN [Suspect]
     Indication: VULVAL CANCER
     Dosage: 80 MG/M2 IV
     Route: 042
  3. ONDANSETRON HYDROCHLORIDE [Concomitant]
  4. DEXAMETHASONE [Concomitant]
  5. FUROSEMIDE [Concomitant]
  6. HYDRATION FLUID [Concomitant]

REACTIONS (1)
  - RENAL FAILURE ACUTE [None]
